FAERS Safety Report 6794189-7 (Version None)
Quarter: 2010Q2

REPORT INFORMATION
  Report Type: 
  Country: None (occurrence: None)
  Receive Date: 20100624
  Receipt Date: 20080826
  Transmission Date: 20101027
  Serious: No
  Sender: FDA-Public Use
  Company Number: US-PFIZER INC-ENC200800171

PATIENT

DRUGS (1)
  1. ARGATROBAN [Suspect]
     Route: 042
     Dates: end: 20080826

REACTIONS (1)
  - COAGULATION TIME PROLONGED [None]
